FAERS Safety Report 6768143-5 (Version None)
Quarter: 2010Q2

REPORT INFORMATION
  Report Type: 
  Country: None (occurrence: None)
  Receive Date: 20100614
  Receipt Date: 20100608
  Transmission Date: 20101027
  Serious: Yes (Other)
  Sender: FDA-Public Use
  Company Number: DE-PFIZER INC-2010071379

PATIENT
  Age: 75 Year
  Sex: Female

DRUGS (2)
  1. AROMASIN [Suspect]
     Dosage: 25 MG, 1X/DAY
     Route: 048
  2. SORTIS [Suspect]
     Dosage: 40 MG, 1X/DAY
     Route: 048

REACTIONS (4)
  - ALANINE AMINOTRANSFERASE INCREASED [None]
  - ASPARTATE AMINOTRANSFERASE INCREASED [None]
  - BLOOD ALKALINE PHOSPHATASE INCREASED [None]
  - GAMMA-GLUTAMYLTRANSFERASE INCREASED [None]
